FAERS Safety Report 5051324-9 (Version None)
Quarter: 2006Q2

REPORT INFORMATION
  Report Type: 
  Country: None (occurrence: None)
  Receive Date: 20060614
  Receipt Date: 20060502
  Transmission Date: 20061013
  Serious: Yes (Other)
  Sender: FDA-Public Use
  Company Number: 446995

PATIENT
  Age: 69 Year
  Sex: Female

DRUGS (10)
  1. BONIVA [Suspect]
     Indication: OSTEOPOROSIS
     Dosage: 150 MG   1 PER MONTH   ORAL
     Route: 048
     Dates: start: 20050615, end: 20060415
  2. FISH OIL (FISH OIL) [Concomitant]
  3. MULTIVITAMIN NOS (MULTIVITAMIN NOS) [Concomitant]
  4. ASCORBIC ACID [Concomitant]
  5. CALCIUM (CALCIUM) [Concomitant]
  6. SELENIUM (SELENIUM) [Concomitant]
  7. L-LYSINE (LYSINE) [Concomitant]
  8. ADVIL [Concomitant]
  9. UNSPECIFIED DRUG (GENERIC UNKNOWN) [Concomitant]
  10. ... [Concomitant]

REACTIONS (2)
  - LOOSE TOOTH [None]
  - PAIN IN JAW [None]
